FAERS Safety Report 18668994 (Version 1)
Quarter: 2020Q4

REPORT INFORMATION
  Report Type: Spontaneous
  Country: LU (occurrence: LU)
  Receive Date: 20201227
  Receipt Date: 20201227
  Transmission Date: 20210114
  Serious: Yes (Other)
  Sender: FDA-Public Use
  Company Number: None

PATIENT
  Age: 65 Year
  Sex: Female
  Weight: 102 kg

DRUGS (5)
  1. FEMARA [Concomitant]
     Active Substance: LETROZOLE
  2. STILNOCT [Concomitant]
     Active Substance: ZOLPIDEM TARTRATE
  3. SEROQUEL [Suspect]
     Active Substance: QUETIAPINE FUMARATE
     Indication: SCHIZOPHRENIA
     Route: 048
  4. TEMESTA [Concomitant]
  5. KISQALI [Concomitant]
     Active Substance: RIBOCICLIB

REACTIONS (1)
  - Breast cancer female [None]

NARRATIVE: CASE EVENT DATE: 20170112
